FAERS Safety Report 13651994 (Version 1)
Quarter: 2017Q2

REPORT INFORMATION
  Report Type: Spontaneous
  Country: US (occurrence: US)
  Receive Date: 20170614
  Receipt Date: 20170614
  Transmission Date: 20170830
  Serious: Yes (Other)
  Sender: FDA-Public Use
  Company Number: None

PATIENT
  Age: 66 Year
  Sex: Female
  Weight: 87.75 kg

DRUGS (5)
  1. RELPAX [Concomitant]
     Active Substance: ELETRIPTAN HYDROBROMIDE
  2. BACLOFEN. [Concomitant]
     Active Substance: BACLOFEN
  3. REQUIP [Concomitant]
     Active Substance: ROPINIROLE HYDROCHLORIDE
  4. LAMOTRIGINE. [Suspect]
     Active Substance: LAMOTRIGINE
     Indication: OBSESSIVE-COMPULSIVE DISORDER
     Dosage: ?          QUANTITY:60 TABLET(S);?
     Route: 048
     Dates: start: 20170208, end: 20170512
  5. PROZAC [Concomitant]
     Active Substance: FLUOXETINE HYDROCHLORIDE

REACTIONS (5)
  - Pruritus [None]
  - Eye infection [None]
  - Rash [None]
  - Discomfort [None]
  - Scar [None]

NARRATIVE: CASE EVENT DATE: 20170512
